FAERS Safety Report 4645233-4 (Version None)
Quarter: 2005Q2

REPORT INFORMATION
  Report Type: 
  Country: None (occurrence: None)
  Receive Date: 20050426
  Receipt Date: 20050419
  Transmission Date: 20051028
  Serious: Yes (Other)
  Sender: FDA-Public Use
  Company Number: JP-GLAXOSMITHKLINE-B0378686A

PATIENT
  Age: 54 Year
  Sex: Male

DRUGS (5)
  1. PAXIL [Suspect]
     Indication: DEPRESSION
     Dosage: 20MG PER DAY
     Route: 048
     Dates: start: 20050318, end: 20050320
  2. ANAFRANIL CAP [Concomitant]
     Route: 065
  3. TOFRANIL [Concomitant]
     Route: 048
  4. BENZALIN [Concomitant]
     Route: 048
  5. AMOBAN [Concomitant]
     Route: 048

REACTIONS (1)
  - DELIRIUM [None]
